FAERS Safety Report 5562978-2 (Version None)
Quarter: 2007Q4

REPORT INFORMATION
  Report Type: 
  Country: None (occurrence: None)
  Receive Date: 20071217
  Receipt Date: 20071207
  Transmission Date: 20080405
  Serious: Yes (Other)
  Sender: FDA-Public Use
  Company Number: US-WYE-H01621407

PATIENT
  Sex: Female

DRUGS (1)
  1. ADVIL ALLERGY SINUS [Suspect]
     Dosage: ONE CAPLET X 1
     Route: 048
     Dates: start: 20071101, end: 20071101

REACTIONS (3)
  - ABASIA [None]
  - BLOOD PRESSURE INCREASED [None]
  - GENERAL PHYSICAL CONDITION ABNORMAL [None]
